FAERS Safety Report 15415021 (Version 1)
Quarter: 2018Q3

REPORT INFORMATION
  Report Type: Report from Study
  Country: US (occurrence: US)
  Receive Date: 20180921
  Receipt Date: 20180921
  Transmission Date: 20181010
  Serious: Yes (Hospitalization, Other)
  Sender: FDA-Public Use
  Company Number: US-SHIRE-US201835699

PATIENT
  Sex: Female

DRUGS (1)
  1. HUMAN NORMAL IMMUNOGLOBULIN; LIQUID [Suspect]
     Active Substance: HUMAN IMMUNOGLOBULIN G
     Indication: IMMUNODEFICIENCY COMMON VARIABLE
     Dosage: UNK
     Route: 042

REACTIONS (11)
  - Blood count abnormal [Unknown]
  - Cerebral disorder [Unknown]
  - Skin disorder [Unknown]
  - Pain [Unknown]
  - Fatigue [Unknown]
  - Fibromyalgia [Unknown]
  - Lupus-like syndrome [Unknown]
  - Pigmentation disorder [Unknown]
  - Peripheral swelling [Unknown]
  - Gait disturbance [Unknown]
  - Subcutaneous abscess [Unknown]
